FAERS Safety Report 5714169-X (Version None)
Quarter: 2008Q2

REPORT INFORMATION
  Report Type: 
  Country: None (occurrence: None)
  Receive Date: 20080423
  Receipt Date: 20070625
  Transmission Date: 20081010
  Serious: No
  Sender: FDA-Public Use
  Company Number: US-KINGPHARMUSA00001-K200700797

PATIENT

DRUGS (1)
  1. SKELAXIN [Suspect]
     Indication: BACK DISORDER
     Dosage: 400 MG, BID
     Route: 048
     Dates: start: 20070624, end: 20070624

REACTIONS (2)
  - NAUSEA [None]
  - SENSATION OF FOREIGN BODY [None]
